FAERS Safety Report 9205856 (Version 4)
Quarter: 2013Q4

REPORT INFORMATION
  Report Type: Spontaneous
  Country: US (occurrence: None)
  Receive Date: 20130401
  Receipt Date: 20131009
  Transmission Date: 20140711
  Serious: Yes (Death, Hospitalization)
  Sender: FDA-Public Use
  Company Number: 2013US001087

PATIENT
  Age: 81 Year
  Sex: Female
  Weight: 72.5 kg

DRUGS (14)
  1. PONATINIB (AP24534) TABLET [Suspect]
     Indication: CHROMOSOME ANALYSIS ABNORMAL
     Route: 048
     Dates: start: 20120716, end: 20120722
  2. PONATINIB (AP24534) TABLET [Suspect]
     Indication: CHRONIC MYELOID LEUKAEMIA
     Route: 048
     Dates: start: 20120716, end: 20120722
  3. AMLODIPINE (AMLODIPINE MALEATE) [Concomitant]
  4. ASCORBIC ACID (ASCORBIC ACID) [Concomitant]
  5. CALCIUM CARBONATE (CALCIUM CARBONATE) [Concomitant]
  6. CLONIDINE (CLONIDINE HYDROCHLORIDE) [Concomitant]
  7. COD LIVER OIL (COD-LIVER OIL) [Concomitant]
  8. LASIX (FUROSEMIDE) [Concomitant]
  9. GLUCOSAMINE (GLUCOSAMINE) [Concomitant]
  10. SYNTHROID (LEVOTHYROXINE SODIUM) [Concomitant]
  11. LOSARTAN (LOSARTAN) [Concomitant]
  12. METOPROLOL (METOPROLOL TARTRATE) [Concomitant]
  13. MULTIVITAMIN (VITAMIN NOS) [Concomitant]
  14. NEXIUM (ESOMEPRAZOLE MAGNESIUM) [Concomitant]

REACTIONS (15)
  - Gastroenteritis [None]
  - Respiratory failure [None]
  - Lymphatic disorder [None]
  - Dehydration [None]
  - Haemorrhagic anaemia [None]
  - White blood cell count increased [None]
  - Pancytopenia [None]
  - Pleural effusion [None]
  - Splenomegaly [None]
  - Ascites [None]
  - Adnexa uteri cyst [None]
  - Atrial fibrillation [None]
  - Atrial flutter [None]
  - Left ventricular hypertrophy [None]
  - Mitral valve incompetence [None]
